FAERS Safety Report 10903497 (Version 2)
Quarter: 2015Q1

REPORT INFORMATION
  Report Type: Report from Study
  Country: US (occurrence: US)
  Receive Date: 20150311
  Receipt Date: 20150326
  Transmission Date: 20150721
  Serious: Yes (Hospitalization)
  Sender: FDA-Public Use
  Company Number: US-BIOGENIDEC-2015BI031686

PATIENT
  Sex: Male

DRUGS (1)
  1. TYSABRI [Suspect]
     Active Substance: NATALIZUMAB
     Indication: MULTIPLE SCLEROSIS
     Route: 042
     Dates: start: 20071030

REACTIONS (6)
  - Lower limb fracture [Recovered/Resolved]
  - Head injury [Recovered/Resolved]
  - Hypotension [Unknown]
  - Fall [Recovered/Resolved]
  - Heart rate decreased [Recovered/Resolved]
  - Multiple sclerosis relapse [Recovered/Resolved]

NARRATIVE: CASE EVENT DATE: 2013
